FAERS Safety Report 14620625 (Version 1)
Quarter: 2018Q1

REPORT INFORMATION
  Report Type: Spontaneous
  Country: US (occurrence: US)
  Receive Date: 20180309
  Receipt Date: 20180309
  Transmission Date: 20180509
  Serious: No
  Sender: FDA-Public Use
  Company Number: US-JUBILANT CADISTA PHARMACEUTICALS-2017JUB00252

PATIENT
  Age: 55 Year
  Sex: Female

DRUGS (1)
  1. HYDROCHLOROTHIAZIDE. [Suspect]
     Active Substance: HYDROCHLOROTHIAZIDE
     Dosage: UNK

REACTIONS (1)
  - Dysgeusia [Unknown]

NARRATIVE: CASE EVENT DATE: 20170620
